FAERS Safety Report 4304291-7 (Version None)
Quarter: 2004Q1

REPORT INFORMATION
  Report Type: 
  Country: None (occurrence: None)
  Receive Date: 20040225
  Receipt Date: 20040212
  Transmission Date: 20041129
  Serious: Yes (Other)
  Sender: FDA-Public Use
  Company Number: US-JNJFOC-20040202811

PATIENT
  Age: 47 Year
  Sex: Female

DRUGS (1)
  1. TYLENOL W/ CODEINE [Suspect]
     Indication: DRUG USE FOR UNKNOWN INDICATION
     Dates: start: 20040208

REACTIONS (4)
  - MURDER [None]
  - OPEN WOUND [None]
  - SOMNOLENCE [None]
  - SUICIDE ATTEMPT [None]
